FAERS Safety Report 17037562 (Version 3)
Quarter: 2020Q1

REPORT INFORMATION
  Report Type: Report from Study
  Country: IT (occurrence: IT)
  Receive Date: 20191115
  Receipt Date: 20200224
  Transmission Date: 20200409
  Serious: Yes (Other)
  Sender: FDA-Public Use
  Company Number: PHHY2016IT152823

PATIENT
  Age: 57 Year
  Sex: Female

DRUGS (1)
  1. GILENYA [Suspect]
     Active Substance: FINGOLIMOD HYDROCHLORIDE
     Indication: MULTIPLE SCLEROSIS
     Dosage: 0.5 MG, QD
     Route: 048
     Dates: start: 20131126, end: 20190510

REACTIONS (9)
  - Lymphocyte count decreased [Unknown]
  - Benign neoplasm of thyroid gland [Unknown]
  - Leiomyoma [Recovering/Resolving]
  - Vision blurred [Unknown]
  - Breast mass [Unknown]
  - Thyroid cancer [Recovered/Resolved]
  - Lymphocyte count increased [Unknown]
  - Gamma-glutamyltransferase increased [Unknown]
  - Phlebitis [Unknown]

NARRATIVE: CASE EVENT DATE: 201410
